FAERS Safety Report 18252168 (Version 3)
Quarter: 2020Q3

REPORT INFORMATION
  Report Type: Spontaneous
  Country: US (occurrence: US)
  Receive Date: 20200910
  Receipt Date: 20200910
  Transmission Date: 20201103
  Serious: No
  Sender: FDA-Public Use
  Company Number: US-FARMAPROD-202004-0573

PATIENT
  Sex: Female

DRUGS (6)
  1. CEQUA [Concomitant]
     Active Substance: CYCLOSPORINE
  2. OXERVATE [Suspect]
     Active Substance: CENEGERMIN-BKBJ
     Indication: NEUROTROPHIC KERATOPATHY
     Dates: start: 20200416
  3. PLAQUENIL [Concomitant]
     Active Substance: HYDROXYCHLOROQUINE SULFATE
  4. RABEPRAZOLE SODIUM 10 MG [Concomitant]
  5. FOSAMAX [Concomitant]
     Active Substance: ALENDRONATE SODIUM
  6. LOTEMAX [Concomitant]
     Active Substance: LOTEPREDNOL ETABONATE

REACTIONS (2)
  - Eye pain [Unknown]
  - Eye swelling [Unknown]
